FAERS Safety Report 7949388-5 (Version None)
Quarter: 2011Q4

REPORT INFORMATION
  Report Type: 
  Country: None (occurrence: None)
  Receive Date: 20111130
  Receipt Date: 20111123
  Transmission Date: 20120403
  Serious: Yes (Other)
  Sender: FDA-Public Use
  Company Number: US-GLAXOSMITHKLINE-A0954754A

PATIENT
  Sex: Female

DRUGS (2)
  1. WELLBUTRIN [Concomitant]
  2. LAMICTAL [Suspect]
     Indication: BIPOLAR DISORDER
     Route: 048
     Dates: start: 20111019, end: 20111117

REACTIONS (3)
  - BRONCHOSPASM [None]
  - RASH GENERALISED [None]
  - STEVENS-JOHNSON SYNDROME [None]
